FAERS Safety Report 24414636 (Version 1)
Quarter: 2024Q4

REPORT INFORMATION
  Report Type: Spontaneous
  Country: US (occurrence: US)
  Receive Date: 20241009
  Receipt Date: 20241009
  Transmission Date: 20250115
  Serious: Yes (Other)
  Sender: ALKEM
  Company Number: US-ALKEM LABORATORIES LIMITED-US-ALKEM-2024-23059

PATIENT
  Age: 53 Year
  Sex: Female

DRUGS (1)
  1. CHLORTHALIDONE [Suspect]
     Active Substance: CHLORTHALIDONE
     Indication: Product used for unknown indication
     Dosage: 50 MILLIGRAM, QD, (5 DAYS PER WEEK) FOR 1.5 MONTHS
     Route: 048

REACTIONS (2)
  - Muscle necrosis [Unknown]
  - Myopathy [Unknown]
